FAERS Safety Report 5712864-X (Version None)
Quarter: 2008Q2

REPORT INFORMATION
  Report Type: 
  Country: None (occurrence: None)
  Receive Date: 20080421
  Receipt Date: 20080421
  Transmission Date: 20081010
  Serious: Yes (Hospitalization)
  Sender: FDA-Public Use
  Company Number: None

PATIENT
  Age: 82 Year
  Sex: Female
  Weight: 78.4723 kg

DRUGS (7)
  1. PEMETREXED [Suspect]
     Dosage: 500 MG/M2 EVERY OTHER WEEK IV
     Route: 042
     Dates: start: 20070727, end: 20071130
  2. GEMCITABINE [Suspect]
     Dosage: 1500 MG/M2 EVERY OTHER WEEK IV
     Route: 042
     Dates: start: 20070727, end: 20071130
  3. AXID [Concomitant]
  4. COUMADIN [Concomitant]
  5. VITAMIN B-12 [Concomitant]
  6. FOLIC ACID [Concomitant]
  7. DECADRON [Concomitant]

REACTIONS (6)
  - CONFUSIONAL STATE [None]
  - FEBRILE NEUTROPENIA [None]
  - MENTAL STATUS CHANGES [None]
  - PNEUMONIA STAPHYLOCOCCAL [None]
  - SPUTUM CULTURE POSITIVE [None]
  - STAPHYLOCOCCAL INFECTION [None]
